FAERS Safety Report 5577721-0 (Version None)
Quarter: 2007Q4

REPORT INFORMATION
  Report Type: 
  Country: None (occurrence: None)
  Receive Date: 20071218
  Receipt Date: 20071207
  Transmission Date: 20080405
  Serious: No
  Sender: FDA-Public Use
  Company Number: 2007-168960-NL

PATIENT
  Sex: Male

DRUGS (3)
  1. MIRTAZAPINE [Suspect]
     Dosage: DF TRANSPLACENTAL
     Route: 064
  2. METOCLOPRAMIDE [Concomitant]
  3. DIMENHYDRINATE [Concomitant]

REACTIONS (16)
  - ABNORMAL BEHAVIOUR [None]
  - AGITATION NEONATAL [None]
  - BLOOD GLUCOSE INCREASED [None]
  - CAESAREAN SECTION [None]
  - DRUG EXPOSURE DURING PREGNANCY [None]
  - DRUG WITHDRAWAL SYNDROME NEONATAL [None]
  - FOETAL GROWTH RETARDATION [None]
  - LIVER DISORDER [None]
  - METABOLIC DISORDER [None]
  - NEONATAL TACHYCARDIA [None]
  - NEONATAL TACHYPNOEA [None]
  - PRE-ECLAMPSIA [None]
  - PREMATURE BABY [None]
  - RENAL IMPAIRMENT NEONATAL [None]
  - STRESS [None]
  - TREMOR NEONATAL [None]
